FAERS Safety Report 9421241 (Version 1)
Quarter: 2013Q3

REPORT INFORMATION
  Report Type: Spontaneous
  Country: DE (occurrence: DE)
  Receive Date: 20130725
  Receipt Date: 20130725
  Transmission Date: 20140515
  Serious: Yes (Congenital Anomaly)
  Sender: FDA-Public Use
  Company Number: DE-BAXTER-2013BAX027973

PATIENT
  Age: 1 Day
  Sex: Male
  Weight: 2.41 kg

DRUGS (10)
  1. ENDOXAN 1G [Suspect]
     Indication: FOETAL EXPOSURE TIMING UNSPECIFIED
     Dosage: ON 10.8./ 31.08./ 21.09.2009
     Route: 064
     Dates: start: 20090810, end: 20090921
  2. FLUOROURACIL [Suspect]
     Indication: FOETAL EXPOSURE TIMING UNSPECIFIED
     Dosage: AM 10.8./ 31.08./ 21.09.2009
     Route: 064
     Dates: start: 20090810, end: 20090921
  3. ADRIAMYCIN [Suspect]
     Indication: FOETAL EXPOSURE TIMING UNSPECIFIED
     Dosage: ON 10.8./ 31.08./ 21.09.2009
     Route: 064
     Dates: start: 20090810, end: 20090921
  4. ARILIN [Concomitant]
     Indication: FOETAL EXPOSURE TIMING UNSPECIFIED
     Route: 064
     Dates: start: 20090403, end: 20090410
  5. ARILIN [Concomitant]
  6. DOEDERLEIN MED [Concomitant]
     Indication: FOETAL EXPOSURE TIMING UNSPECIFIED
     Dosage: 1X PRO DIE FROM WEEK 4+2 ONGOING
     Route: 064
     Dates: start: 20090410
  7. PSORCUTAN BETA [Concomitant]
     Indication: FOETAL EXPOSURE TIMING UNSPECIFIED
     Route: 064
  8. FOLIO [Concomitant]
     Indication: FOETAL EXPOSURE TIMING UNSPECIFIED
     Dosage: 0.4 [MG/D ]
     Route: 064
  9. CEFAZOLIN [Concomitant]
     Indication: FOETAL EXPOSURE TIMING UNSPECIFIED
     Route: 064
     Dates: start: 20091103, end: 20091104
  10. CYTOTEC [Concomitant]
     Indication: FOETAL EXPOSURE TIMING UNSPECIFIED
     Route: 064

REACTIONS (2)
  - Haemangioma congenital [Unknown]
  - Foetal exposure during pregnancy [Unknown]
